FAERS Safety Report 16617516 (Version 1)
Quarter: 2019Q3

REPORT INFORMATION
  Report Type: Spontaneous
  Country: US (occurrence: US)
  Receive Date: 20190723
  Receipt Date: 20190723
  Transmission Date: 20191004
  Serious: Yes (Other)
  Sender: FDA-Public Use
  Company Number: US-BECTON DICKINSON-2019BDN00276

PATIENT

DRUGS (6)
  1. CHLORAPREP WITH TINT [Suspect]
     Active Substance: CHLORHEXIDINE GLUCONATE\ISOPROPYL ALCOHOL
     Indication: INFECTION PROPHYLAXIS
     Dosage: UNK
     Route: 061
     Dates: start: 20190114, end: 20190114
  2. POWERPICC, 4 FR SL, 3CG [Suspect]
     Active Substance: DEVICE
  3. LIDOCAINE. [Suspect]
     Active Substance: LIDOCAINE
     Dosage: 5 ML
     Dates: start: 20190114
  4. BIOPATCH DRESSING W/ CHG [Suspect]
     Active Substance: CHLORHEXIDINE GLUCONATE
  5. UNSPECIFIED CHEMOTHERAPY [Concomitant]
     Active Substance: UNSPECIFIED INGREDIENT
  6. CHLORAPREP [Suspect]
     Active Substance: CHLORHEXIDINE GLUCONATE\ISOPROPYL ALCOHOL
     Indication: INFECTION PROPHYLAXIS
     Dosage: UNK
     Route: 061
     Dates: start: 20190114, end: 20190114

REACTIONS (2)
  - Complication of device removal [Recovered/Resolved]
  - Foreign body [Recovered/Resolved]

NARRATIVE: CASE EVENT DATE: 20190528
